FAERS Safety Report 8687427 (Version 3)
Quarter: 2012Q4

REPORT INFORMATION
  Report Type: 
  Country: CO (occurrence: CO)
  Receive Date: 20120727
  Receipt Date: 20121211
  Transmission Date: 20130627
  Serious: Yes (Other)
  Sender: FDA-Public Use
  Company Number: CO-PFIZER INC-2012177596

PATIENT
  Age: 16 Year
  Sex: Female

DRUGS (5)
  1. GENOTROPIN [Suspect]
     Indication: GROWTH HORMONE DEFICIENCY
     Dosage: 1.8 mg, except Saturday at 1.7mg, 1x/day
     Route: 058
     Dates: start: 200703
  2. GENOTROPIN [Suspect]
     Indication: SHORT STATURE
  3. THYROXINE [Concomitant]
     Indication: HYPOTHYROIDISM
     Dosage: 25 mg (1/2 tablet of 50 mg), 1x/day
     Route: 048
     Dates: start: 1998
  4. VALPROIC ACID [Concomitant]
     Indication: SEIZURES
     Dosage: 4cc, 3x/day
     Route: 048
     Dates: start: 2006, end: 200809
  5. VALPROIC ACID [Concomitant]
     Dosage: 7cc, 3x/day
     Route: 048
     Dates: start: 200809

REACTIONS (6)
  - Haemorrhage [Unknown]
  - Blood pressure abnormal [Unknown]
  - Injection site pain [Recovered/Resolved]
  - Haematoma [Unknown]
  - Fall [Unknown]
  - Platelet count decreased [Unknown]
